FAERS Safety Report 5150216-4 (Version None)
Quarter: 2006Q4

REPORT INFORMATION
  Report Type: 
  Country: None (occurrence: None)
  Receive Date: 20061114
  Receipt Date: 20061103
  Transmission Date: 20070319
  Serious: Yes (Other)
  Sender: FDA-Public Use
  Company Number: US-AMGEN-KDL199226

PATIENT
  Sex: Female

DRUGS (3)
  1. ENBREL [Suspect]
     Indication: RHEUMATOID ARTHRITIS
     Route: 058
     Dates: start: 20060101
  2. METHOTREXATE [Concomitant]
     Route: 048
     Dates: start: 20040101
  3. PLAQUENIL [Concomitant]

REACTIONS (4)
  - HEADACHE [None]
  - HERPES ZOSTER [None]
  - RETINAL TOXICITY [None]
  - TOOTH INFECTION [None]
